FAERS Safety Report 19808181 (Version 1)
Quarter: 2021Q3

REPORT INFORMATION
  Report Type: Spontaneous
  Country: NL (occurrence: NL)
  Receive Date: 20210909
  Receipt Date: 20210909
  Transmission Date: 20211014
  Serious: Yes (Disabling)
  Sender: FDA-Public Use
  Company Number: NL-TEVA-2021-NL-1950136

PATIENT
  Sex: Female
  Weight: 56 kg

DRUGS (3)
  1. PAROXETINE TABLET 30MG / BRAND NAME NOT SPECIFIED [Suspect]
     Active Substance: PAROXETINE
     Indication: DEPRESSION
     Dosage: 30 MILLIGRAM DAILY;
     Dates: start: 201703, end: 20190516
  2. QUETIAPINE TABLET FO 100MG / BRAND NAME NOT SPECIFIED [Suspect]
     Active Substance: QUETIAPINE
     Indication: RESTLESSNESS
     Dosage: UNIT DOSE :25 MG , (DIVIDE PILL BY FOUR) PER DAY, THERAPY END DATE :ASKU
     Dates: start: 2017
  3. PAROXETINE TABLET 30MG / BRAND NAME NOT SPECIFIED [Suspect]
     Active Substance: PAROXETINE
     Indication: ANXIETY

REACTIONS (2)
  - Fatigue [Recovering/Resolving]
  - Electric shock sensation [Recovered/Resolved]
